FAERS Safety Report 6370973-9 (Version None)
Quarter: 2009Q3

REPORT INFORMATION
  Report Type: 
  Country: None (occurrence: None)
  Receive Date: 20090923
  Receipt Date: 20090909
  Transmission Date: 20100115
  Serious: Yes (Hospitalization)
  Sender: FDA-Public Use
  Company Number: GB-CELGENEUS-167-C5013-09090003

PATIENT
  Sex: Male
  Weight: 63 kg

DRUGS (17)
  1. CC-5013 [Suspect]
     Indication: MULTIPLE MYELOMA
     Route: 048
     Dates: start: 20090522
  2. CC-5013 [Suspect]
     Route: 048
     Dates: start: 20090731, end: 20090828
  3. DEXAMETHASONE [Suspect]
     Indication: MULTIPLE MYELOMA
     Route: 048
     Dates: start: 20090522, end: 20090828
  4. DEXAMETHASONE [Suspect]
     Route: 048
     Dates: start: 20090911
  5. EPOGEN [Concomitant]
     Indication: ANAEMIA
     Route: 058
     Dates: start: 20090605
  6. SODIUM CLODRONATE [Concomitant]
     Indication: DRUG USE FOR UNKNOWN INDICATION
     Route: 048
     Dates: start: 20090703, end: 20090821
  7. AMOXICILLIN [Concomitant]
     Indication: INFECTION
     Route: 048
     Dates: start: 20090803, end: 20090815
  8. FLUCLOXACILLIN [Concomitant]
     Indication: INFECTION
     Route: 048
     Dates: start: 20090803, end: 20090815
  9. DIPROBASE [Concomitant]
     Indication: DRUG USE FOR UNKNOWN INDICATION
     Route: 061
     Dates: start: 20090814
  10. WARFARIN SODIUM [Concomitant]
     Indication: THROMBOSIS PROPHYLAXIS
     Route: 048
     Dates: start: 20090306
  11. OMEPRAZOLE [Concomitant]
     Indication: PROPHYLAXIS
     Route: 048
     Dates: start: 20090522
  12. ACETAMINOPHEN [Concomitant]
     Indication: HEADACHE
     Route: 048
  13. BACTROBAN [Concomitant]
     Route: 061
     Dates: start: 20090429
  14. ZOPICLONE [Concomitant]
     Indication: INSOMNIA
     Route: 048
     Dates: start: 20090711
  15. VITAMIN K [Concomitant]
     Indication: DRUG USE FOR UNKNOWN INDICATION
     Route: 051
     Dates: start: 20090809, end: 20090809
  16. DIGOXIN [Concomitant]
     Indication: DRUG USE FOR UNKNOWN INDICATION
     Route: 048
     Dates: start: 20090810
  17. FUROSEMIDE [Concomitant]
     Indication: DRUG USE FOR UNKNOWN INDICATION
     Route: 048
     Dates: start: 20090810

REACTIONS (3)
  - EXFOLIATIVE RASH [None]
  - RENAL FAILURE ACUTE [None]
  - VASCULITIC RASH [None]
